FAERS Safety Report 7991915-6 (Version None)
Quarter: 2011Q4

REPORT INFORMATION
  Report Type: 
  Country: None (occurrence: None)
  Receive Date: 20111219
  Receipt Date: 20111214
  Transmission Date: 20120403
  Serious: Yes (Other)
  Sender: FDA-Public Use
  Company Number: US-PFIZER INC-2011304424

PATIENT
  Sex: Male

DRUGS (1)
  1. CHANTIX [Suspect]
     Indication: SMOKING CESSATION THERAPY
     Dosage: UNK
     Dates: start: 20090103

REACTIONS (12)
  - DEPRESSION [None]
  - PANIC ATTACK [None]
  - AGGRESSION [None]
  - GASTROINTESTINAL HAEMORRHAGE [None]
  - ANXIETY [None]
  - SUICIDAL IDEATION [None]
  - MANIA [None]
  - HALLUCINATION [None]
  - AMNESIA [None]
  - CONFUSIONAL STATE [None]
  - LETHARGY [None]
  - INJURY [None]
